FAERS Safety Report 19183397 (Version 3)
Quarter: 2021Q2

REPORT INFORMATION
  Report Type: Spontaneous
  Country: US (occurrence: US)
  Receive Date: 20210427
  Receipt Date: 20210509
  Transmission Date: 20210717
  Serious: No
  Sender: FDA-Public Use
  Company Number: US-ELI_LILLY_AND_COMPANY-US202104010246

PATIENT
  Age: 81 Year
  Sex: Female
  Weight: 58.96 kg

DRUGS (3)
  1. TRULICITY [Suspect]
     Active Substance: DULAGLUTIDE
     Dosage: 1.5 MG, WEEKLY (1/W)
     Route: 058
     Dates: end: 20210419
  2. TRULICITY [Suspect]
     Active Substance: DULAGLUTIDE
     Indication: DIABETES MELLITUS
     Dosage: 0.75 MG, WEEKLY (1/W)?EVERY MONAY
     Route: 058
     Dates: start: 20210301
  3. PROBIOTIC [BIFIDOBACTERIUM LACTIS] [Concomitant]
     Active Substance: BIFIDOBACTERIUM ANIMALIS LACTIS
     Indication: PRODUCT USED FOR UNKNOWN INDICATION

REACTIONS (5)
  - Sleep disorder due to general medical condition, insomnia type [Not Recovered/Not Resolved]
  - Mass [Not Recovered/Not Resolved]
  - Rash pruritic [Not Recovered/Not Resolved]
  - Urticaria [Not Recovered/Not Resolved]
  - Scratch [Not Recovered/Not Resolved]

NARRATIVE: CASE EVENT DATE: 20210418
